FAERS Safety Report 4398593-6 (Version None)
Quarter: 2004Q3

REPORT INFORMATION
  Report Type: 
  Country: None (occurrence: None)
  Receive Date: 20040712
  Receipt Date: 20040707
  Transmission Date: 20050211
  Serious: Yes (Death)
  Sender: FDA-Public Use
  Company Number: J081-002-001699

PATIENT
  Age: 82 Year
  Sex: Male

DRUGS (3)
  1. ARICEPT [Suspect]
     Indication: DEMENTIA ALZHEIMER'S TYPE
     Dosage: 5 MG, 1 IN 1 D ORAL
     Route: 048
     Dates: start: 20030912
  2. NITRAZEPAM [Concomitant]
  3. BORRAGINOL [Concomitant]

REACTIONS (1)
  - SUDDEN CARDIAC DEATH [None]
